FAERS Safety Report 11227653 (Version 2)
Quarter: 2015Q3

REPORT INFORMATION
  Report Type: Spontaneous
  Country: US (occurrence: US)
  Receive Date: 20150630
  Receipt Date: 20150714
  Transmission Date: 20151125
  Serious: Yes (Other)
  Sender: FDA-Public Use
  Company Number: US-PFIZER INC-2015213920

PATIENT
  Age: 73 Year
  Sex: Female
  Weight: 56.24 kg

DRUGS (2)
  1. PREMARIN [Suspect]
     Active Substance: ESTROGENS, CONJUGATED
     Dosage: UNK, 2X/WEEK (0.5)
  2. TRIMO SAN [Suspect]
     Active Substance: OXYQUINOLINE SULFATE\SODIUM LAURYL SULFATE
     Dosage: UNK

REACTIONS (1)
  - Urinary tract infection [Unknown]
